FAERS Safety Report 23041590 (Version 2)
Quarter: 2023Q4

REPORT INFORMATION
  Report Type: Report from Study
  Country: AU (occurrence: AU)
  Receive Date: 20231007
  Receipt Date: 20231212
  Transmission Date: 20240109
  Serious: Yes (Other)
  Sender: FDA-Public Use
  Company Number: AU-JNJFOC-20230969566

PATIENT
  Age: 63 Year
  Sex: Female
  Weight: 75 kg

DRUGS (1)
  1. BORTEZOMIB [Suspect]
     Active Substance: BORTEZOMIB
     Indication: Plasma cell myeloma
     Dosage: UNK
     Route: 065

REACTIONS (1)
  - Plasma cell myeloma recurrent [Unknown]

NARRATIVE: CASE EVENT DATE: 20121231
